FAERS Safety Report 9577899 (Version 1)
Quarter: 2013Q4

REPORT INFORMATION
  Report Type: Spontaneous
  Country: US (occurrence: US)
  Receive Date: 20131001
  Receipt Date: 20131001
  Transmission Date: 20140711
  Serious: No
  Sender: FDA-Public Use
  Company Number: US-AMGEN-USASP2013010117

PATIENT
  Age: 46 Year
  Sex: Female
  Weight: 68.03 kg

DRUGS (9)
  1. ENBREL [Suspect]
     Indication: RHEUMATOID ARTHRITIS
     Dosage: 50 MG, QWK
     Route: 058
  2. FOLIC ACID [Concomitant]
     Dosage: 20 MG, UNK
  3. RESTASIS [Concomitant]
     Dosage: 0.05%
  4. TYLENOL                            /00020001/ [Concomitant]
     Dosage: 500 MG, UNK
  5. ADVIL                              /00044201/ [Concomitant]
     Dosage: 200 MG, UNK
  6. METHOTREXATE [Concomitant]
     Dosage: 2.5 MG, UNK
  7. VITAMIN D                          /00107901/ [Concomitant]
     Dosage: 400 UNIT, UNK
  8. CALCIUM D                          /00944201/ [Concomitant]
     Dosage: UNK
  9. OMEGA 3                            /01334101/ [Concomitant]
     Dosage: 340 MG, UNK

REACTIONS (1)
  - Injection site bruising [Unknown]
